FAERS Safety Report 11265458 (Version 1)
Quarter: 2015Q3

REPORT INFORMATION
  Report Type: Spontaneous
  Country: ES (occurrence: ES)
  Receive Date: 20150713
  Receipt Date: 20150713
  Transmission Date: 20151125
  Serious: Yes (Hospitalization)
  Sender: FDA-Public Use
  Company Number: ES-WATSON-2015-14251

PATIENT
  Age: 16 Year
  Sex: Male

DRUGS (4)
  1. ADIRO [Concomitant]
     Active Substance: ASPIRIN
     Indication: PRODUCT USED FOR UNKNOWN INDICATION
     Dosage: UNK; BAYER HISPANIA S.L
     Route: 065
  2. SILDENAFIL. [Suspect]
     Active Substance: SILDENAFIL
     Indication: VASODILATATION
     Dosage: UNK
     Route: 048
     Dates: start: 2011
  3. OMEPRAZOLO ALMUS [Concomitant]
     Indication: PRODUCT USED FOR UNKNOWN INDICATION
     Dosage: UNK; ALMUS FARMACEUTICA S.A
     Route: 065
  4. BOSENTAN (UNKNOWN) [Interacting]
     Active Substance: BOSENTAN
     Indication: PRODUCT USED FOR UNKNOWN INDICATION
     Dosage: UNK
     Route: 048
     Dates: start: 2011

REACTIONS (5)
  - Vomiting [Unknown]
  - Drug interaction [Unknown]
  - Pancytopenia [Unknown]
  - Abdominal pain [Unknown]
  - Nausea [Unknown]

NARRATIVE: CASE EVENT DATE: 201504
